FAERS Safety Report 23586186 (Version 2)
Quarter: 2024Q4

REPORT INFORMATION
  Report Type: Spontaneous
  Country: JP (occurrence: JP)
  Receive Date: 20240301
  Receipt Date: 20241223
  Transmission Date: 20250115
  Serious: Yes (Hospitalization, Other)
  Sender: PFIZER
  Company Number: JP-PFIZER INC-PV202400026941

PATIENT
  Age: 6 Decade
  Sex: Female

DRUGS (3)
  1. LORLATINIB [Suspect]
     Active Substance: LORLATINIB
     Indication: Metastases to central nervous system
     Dosage: UNK
  2. LORLATINIB [Suspect]
     Active Substance: LORLATINIB
     Indication: Lung adenocarcinoma stage IV
  3. LORLATINIB [Suspect]
     Active Substance: LORLATINIB
     Indication: Meningitis

REACTIONS (3)
  - Hallucination [Recovered/Resolved]
  - Paranoia [Recovering/Resolving]
  - Mental disorder [Recovering/Resolving]
